FAERS Safety Report 7953957-6 (Version None)
Quarter: 2011Q4

REPORT INFORMATION
  Report Type: 
  Country: None (occurrence: None)
  Receive Date: 20111202
  Receipt Date: 20111122
  Transmission Date: 20120403
  Serious: Yes (Hospitalization)
  Sender: FDA-Public Use
  Company Number: ES-JNJFOC-20111110081

PATIENT
  Age: 67 Year
  Sex: Female

DRUGS (5)
  1. REMICADE [Suspect]
     Indication: RHEUMATOID ARTHRITIS
     Route: 042
     Dates: start: 20090619, end: 20090923
  2. ADALAT [Concomitant]
     Indication: HYPERTENSION
     Route: 048
  3. BLOKIUM-DIU [Concomitant]
     Indication: HYPERTENSION
     Route: 048
  4. METHOTREXATE [Suspect]
     Indication: RHEUMATOID ARTHRITIS
     Dates: start: 19940101
  5. CARDURA [Concomitant]
     Indication: HYPERTENSION
     Route: 048

REACTIONS (2)
  - PULMONARY TUBERCULOSIS [None]
  - TUBERCULOUS PLEURISY [None]
